FAERS Safety Report 5536863-6 (Version None)
Quarter: 2007Q4

REPORT INFORMATION
  Report Type: 
  Country: None (occurrence: None)
  Receive Date: 20071206
  Receipt Date: 20061109
  Transmission Date: 20080405
  Serious: Yes (Other)
  Sender: FDA-Public Use
  Company Number: US-AMGEN-KDL193952

PATIENT
  Sex: Male

DRUGS (8)
  1. ENBREL [Suspect]
     Indication: ANKYLOSING SPONDYLITIS
  2. DARVOCET [Concomitant]
  3. LAMICTAL [Concomitant]
  4. AMBIEN [Concomitant]
  5. EFFEXOR [Concomitant]
  6. WELLBUTRIN [Concomitant]
  7. REMERON [Concomitant]
  8. METOPROLOL [Concomitant]

REACTIONS (1)
  - MALIGNANT MELANOMA [None]
